FAERS Safety Report 4746808-4 (Version None)
Quarter: 2005Q3

REPORT INFORMATION
  Report Type: 
  Country: None (occurrence: None)
  Receive Date: 20050815
  Receipt Date: 20050728
  Transmission Date: 20060218
  Serious: Yes (Hospitalization, Other)
  Sender: FDA-Public Use
  Company Number: USA0507103985

PATIENT
  Age: 75 Year
  Sex: Female
  Weight: 65 kg

DRUGS (9)
  1. HUMALOG [Suspect]
     Indication: DIABETES MELLITUS
  2. HUMULIN 70/30 [Suspect]
     Indication: DIABETES MELLITUS
     Dosage: 26 U DAY
  3. NITROPATCH (GLYCERYL TRINITRATE) [Concomitant]
  4. COREG [Concomitant]
  5. ASPIRIN [Concomitant]
  6. LASIX [Concomitant]
  7. SPIRONOLACTONE [Concomitant]
  8. MULTI-VITAMIN [Concomitant]
  9. LANTUS [Concomitant]

REACTIONS (24)
  - ANAEMIA [None]
  - ANXIETY [None]
  - BACK PAIN [None]
  - CARDIAC FAILURE CONGESTIVE [None]
  - CORONARY ARTERY OCCLUSION [None]
  - CORONARY ARTERY REOCCLUSION [None]
  - DEPRESSION [None]
  - DIABETIC VASCULAR DISORDER [None]
  - DIFFICULTY IN WALKING [None]
  - GANGRENE [None]
  - GRAFT COMPLICATION [None]
  - HEART VALVE INSUFFICIENCY [None]
  - HYPERTENSION [None]
  - MACULAR DEGENERATION [None]
  - MYOCARDIAL INFARCTION [None]
  - PAIN IN EXTREMITY [None]
  - PERIPHERAL COLDNESS [None]
  - PHARMACEUTICAL PRODUCT COMPLAINT [None]
  - SPINAL COLUMN STENOSIS [None]
  - TOE AMPUTATION [None]
  - TREATMENT NONCOMPLIANCE [None]
  - VISUAL ACUITY REDUCED [None]
  - WEIGHT DECREASED [None]
  - WEIGHT INCREASED [None]
